FAERS Safety Report 25985205 (Version 1)
Quarter: 2025Q4

REPORT INFORMATION
  Report Type: Spontaneous
  Country: US (occurrence: US)
  Receive Date: 20251031
  Receipt Date: 20251031
  Transmission Date: 20260118
  Serious: No
  Sender: Tarsus Pharmaceuticals
  Company Number: US-TARSUS PHARMACEUTICALS-TSP-US-2025-000759

PATIENT
  Age: 63 Year
  Sex: Female

DRUGS (1)
  1. XDEMVY [Suspect]
     Active Substance: LOTILANER
     Indication: Blepharitis
     Dosage: 1 DROP, BID (INSTILL 1 DROP INTO BOTH EYES TWICE A DAY)
     Route: 047
     Dates: start: 20250511, end: 20250608

REACTIONS (3)
  - Eye irritation [Unknown]
  - Vision blurred [Unknown]
  - Product physical issue [Unknown]
